FAERS Safety Report 5320308-5 (Version None)
Quarter: 2007Q1

REPORT INFORMATION
  Report Type: 
  Country: None (occurrence: None)
  Receive Date: 20070214
  Receipt Date: 20061110
  Transmission Date: 20070707
  Serious: Yes (Hospitalization, Other)
  Sender: FDA-Public Use
  Company Number: 2006-US-00639

PATIENT
  Age: 63 Year
  Sex: Female
  Weight: 54.4316 kg

DRUGS (6)
  1. NITROFURANTOIN [Suspect]
     Indication: CYSTITIS NONINFECTIVE
     Dosage: 50 MG (50 MG,1 IN 1 D),ORAL
     Route: 048
     Dates: start: 20020401, end: 20050221
  2. NITROFURANTOIN [Suspect]
     Indication: HAEMATURIA
     Dosage: 50 MG (50 MG,1 IN 1 D),ORAL
     Route: 048
     Dates: start: 20020401, end: 20050221
  3. NITROFURANTOIN [Suspect]
     Indication: NOCTURIA
     Dosage: 50 MG (50 MG,1 IN 1 D),ORAL
     Route: 048
     Dates: start: 20020401, end: 20050221
  4. NITROFURANTOIN [Suspect]
     Indication: RESIDUAL URINE
     Dosage: 50 MG (50 MG,1 IN 1 D),ORAL
     Route: 048
     Dates: start: 20020401, end: 20050221
  5. NITROFURANTOIN [Suspect]
     Indication: TRIGONITIS
     Dosage: 50 MG (50 MG,1 IN 1 D),ORAL
     Route: 048
     Dates: start: 20020401, end: 20050221
  6. TAMSULOSIN HCL [Concomitant]

REACTIONS (4)
  - FREQUENT BOWEL MOVEMENTS [None]
  - HEPATIC CIRRHOSIS [None]
  - HEPATITIS [None]
  - LIVER FUNCTION TEST ABNORMAL [None]
